FAERS Safety Report 23804281 (Version 1)
Quarter: 2024Q2

REPORT INFORMATION
  Report Type: Spontaneous
  Country: US (occurrence: None)
  Receive Date: 20240430
  Receipt Date: 20240430
  Transmission Date: 20240716
  Serious: Yes (Hospitalization)
  Sender: FDA-Public Use
  Company Number: None

PATIENT
  Age: 76 Year
  Sex: Male
  Weight: 121 kg

DRUGS (1)
  1. WARFARIN SODIUM [Suspect]
     Active Substance: WARFARIN SODIUM
     Dates: start: 20220930

REACTIONS (3)
  - Gastrointestinal haemorrhage [None]
  - Anticoagulation drug level above therapeutic [None]
  - Hypotension [None]

NARRATIVE: CASE EVENT DATE: 20240313
